FAERS Safety Report 20892239 (Version 1)
Quarter: 2022Q2

REPORT INFORMATION
  Report Type: Spontaneous
  Country: US (occurrence: US)
  Receive Date: 20220530
  Receipt Date: 20220530
  Transmission Date: 20220720
  Serious: No
  Sender: FDA-Public Use
  Company Number: US-CELGENE-USA-20220200413

PATIENT
  Age: 62 Year
  Sex: Male

DRUGS (10)
  1. REVLIMID [Suspect]
     Active Substance: LENALIDOMIDE
     Indication: Plasma cell myeloma
     Dosage: FREQUENCY TEXT: FOR 21 DAYS THEN 7 DAYS OFF?15 MILLIGRAM
     Route: 048
     Dates: start: 201202
  2. REVLIMID [Suspect]
     Active Substance: LENALIDOMIDE
     Indication: Plasma cell myeloma recurrent
     Dosage: FREQUENCY TEXT: FOR 21 DAYS THEN 7 DAYS OFF?5 MILLIGRAM
     Route: 048
     Dates: start: 201208
  3. REVLIMID [Suspect]
     Active Substance: LENALIDOMIDE
     Dosage: FREQUENCY TEXT: FOR 21 DAYS THEN 7 DAYS OFF?10 MILLIGRAM
     Route: 048
     Dates: start: 201809
  4. REVLIMID [Suspect]
     Active Substance: LENALIDOMIDE
     Dosage: FREQUENCY TEXT: FOR 21 DAYS THEN 7 DAYS OFF?5 MILLIGRAM
     Route: 048
     Dates: start: 201905
  5. REVLIMID [Suspect]
     Active Substance: LENALIDOMIDE
     Dosage: FREQUENCY TEXT: FOR 21 DAYS THEN 7 DAYS OFF?10 MILLIGRAM
     Route: 048
     Dates: start: 202107
  6. REVLIMID [Suspect]
     Active Substance: LENALIDOMIDE
     Dosage: FREQUENCY TEXT: FOR 21 DAYS THEN 7 DAYS OFF?15 MILLIGRAM
     Route: 048
     Dates: start: 202111
  7. REVLIMID [Suspect]
     Active Substance: LENALIDOMIDE
     Dosage: FREQUENCY TEXT: FOR 21 DAYS THEN 7 DAYS OFF?10 MILLIGRAM
     Route: 048
     Dates: start: 202112
  8. REVLIMID [Suspect]
     Active Substance: LENALIDOMIDE
     Dosage: FREQUENCY TEXT: FOR 21 DAYS THEN 7 DAYS OFF?15 MILLIGRAM
     Route: 048
     Dates: start: 202201
  9. REVLIMID [Suspect]
     Active Substance: LENALIDOMIDE
     Dosage: FREQUENCY TEXT: FOR 21 DAYS THEN 7 DAYS OFF?10 MILLIGRAM
     Route: 048
     Dates: start: 202202
  10. REVLIMID [Suspect]
     Active Substance: LENALIDOMIDE
     Dosage: 1 CAPSULE EVERY DAY FOR 21 DAYS ON FOLLOWED BY 7 DAYS OFF
     Route: 048
     Dates: start: 20180912

REACTIONS (2)
  - Fatigue [Unknown]
  - Diarrhoea [Unknown]
